FAERS Safety Report 13854794 (Version 1)
Quarter: 2017Q3

REPORT INFORMATION
  Report Type: Spontaneous
  Country: US (occurrence: US)
  Receive Date: 20170810
  Receipt Date: 20170810
  Transmission Date: 20171127
  Serious: Yes (Death, Other)
  Sender: FDA-Public Use
  Company Number: US-BAUSCH-BL-2017-023016

PATIENT
  Age: 17 Year
  Sex: Male

DRUGS (1)
  1. PHENOL. [Suspect]
     Active Substance: PHENOL
     Indication: PRODUCT USED FOR UNKNOWN INDICATION
     Route: 003

REACTIONS (4)
  - Toxicity to various agents [Fatal]
  - Seizure [Unknown]
  - Overdose [Fatal]
  - Accidental exposure to product [Unknown]
